FAERS Safety Report 4731535-X (Version None)
Quarter: 2005Q3

REPORT INFORMATION
  Report Type: 
  Country: None (occurrence: None)
  Receive Date: 20050719
  Receipt Date: 20040611
  Transmission Date: 20060218
  Serious: Yes (Hospitalization)
  Sender: FDA-Public Use
  Company Number: 199767

PATIENT
  Age: 51 Year
  Sex: Female
  Weight: 75.7507 kg

DRUGS (7)
  1. AVONEX [Suspect]
     Indication: MULTIPLE SCLEROSIS
     Dosage: 30 UG;QW;IM
     Dates: start: 20030101, end: 20040101
  2. AVONEX [Suspect]
     Indication: MULTIPLE SCLEROSIS
     Dosage: 30 UG;QW;IM
     Dates: start: 20040101, end: 20040610
  3. AMANTADINE [Concomitant]
  4. PREMPRO [Concomitant]
  5. AMITRIPTYLINE [Concomitant]
  6. OXYBUTYNIN [Concomitant]
  7. FOLIC ACID [Concomitant]

REACTIONS (2)
  - DRUG INEFFECTIVE [None]
  - MULTIPLE SCLEROSIS RELAPSE [None]
